FAERS Safety Report 6094011-0 (Version None)
Quarter: 2009Q1

REPORT INFORMATION
  Report Type: 
  Country: None (occurrence: None)
  Receive Date: 20090224
  Receipt Date: 20090224
  Transmission Date: 20090719
  Serious: Yes (Hospitalization)
  Sender: FDA-Public Use
  Company Number: None

PATIENT
  Sex: Male
  Weight: 74 kg

DRUGS (2)
  1. BEVACIZUMAB LAST DOSE GIVEN 1110 MG [Suspect]
     Indication: RENAL CELL CARCINOMA
     Dosage: 15 MG/KG D1 Q 21 DAYS IV
     Route: 042
     Dates: start: 20090126
  2. BORTEZOMIB LAST DOSE GIVEN 2.6 MG [Suspect]
     Indication: RENAL CELL CARCINOMA
     Dosage: 1.3 MG/M 2 D1; 4; 8; 11 Q 21 D IV
     Route: 042
     Dates: start: 20090205

REACTIONS (1)
  - LARGE INTESTINE PERFORATION [None]
